FAERS Safety Report 6164889-0 (Version None)
Quarter: 2009Q2

REPORT INFORMATION
  Report Type: 
  Country: None (occurrence: None)
  Receive Date: 20090423
  Receipt Date: 20090415
  Transmission Date: 20091009
  Serious: Yes (Other)
  Sender: FDA-Public Use
  Company Number: PHHY2009GB08247

PATIENT
  Age: 68 Year
  Sex: Female

DRUGS (10)
  1. DIOVAN HCT [Suspect]
     Indication: HYPERTENSION
     Dosage: 160/12.5 MG
     Dates: start: 20080318, end: 20090221
  2. ANTIHISTAMINES [Concomitant]
  3. PIRITON [Concomitant]
     Dosage: UNK
  4. MULTI-VITAMINS [Concomitant]
  5. HAWTHORN [Concomitant]
  6. BRICANYL [Concomitant]
     Dosage: UNK
  7. ACETAMINOPHEN W/ CODEINE [Concomitant]
  8. EZETIMIBE [Concomitant]
  9. OXIS TURBUHALER [Concomitant]
  10. PULMICORT-100 [Concomitant]

REACTIONS (9)
  - ABDOMINAL DISCOMFORT [None]
  - ANGIOEDEMA [None]
  - BACK PAIN [None]
  - BLOOD PRESSURE INADEQUATELY CONTROLLED [None]
  - DRUG INEFFECTIVE [None]
  - LIP SWELLING [None]
  - OEDEMA MOUTH [None]
  - RENAL DISORDER [None]
  - SWOLLEN TONGUE [None]
